FAERS Safety Report 4758069-0 (Version None)
Quarter: 2005Q3

REPORT INFORMATION
  Report Type: 
  Country: None (occurrence: None)
  Receive Date: 20050829
  Receipt Date: 20050825
  Transmission Date: 20060218
  Serious: Yes (Other)
  Sender: FDA-Public Use
  Company Number: THQ2005A00784

PATIENT
  Sex: Female

DRUGS (3)
  1. LANSOPRAZOLE [Suspect]
     Indication: DYSPEPSIA
     Dates: end: 20050817
  2. CELEBREX [Concomitant]
  3. DICLOFENAC [Concomitant]

REACTIONS (13)
  - ALOPECIA [None]
  - ARTHRALGIA [None]
  - BLISTER [None]
  - BREAST TENDERNESS [None]
  - DEPRESSION [None]
  - DYSGEUSIA [None]
  - FATIGUE [None]
  - FLATULENCE [None]
  - HEPATITIS [None]
  - IMMUNE SYSTEM DISORDER [None]
  - JOINT SWELLING [None]
  - MYALGIA [None]
  - SENSATION OF FOREIGN BODY [None]
